FAERS Safety Report 4771460-1 (Version None)
Quarter: 2005Q3

REPORT INFORMATION
  Report Type: 
  Country: None (occurrence: None)
  Receive Date: 20050915
  Receipt Date: 20050901
  Transmission Date: 20060218
  Serious: Yes (Hospitalization, Other)
  Sender: FDA-Public Use
  Company Number: 2005123241

PATIENT
  Age: 80 Year
  Sex: Female

DRUGS (11)
  1. CADUET [Suspect]
     Indication: BLOOD CHOLESTEROL INCREASED
     Dosage: ( 1 IN 1 D), ORAL
     Route: 048
     Dates: start: 20050101
  2. CADUET [Suspect]
     Indication: HYPERTENSION
     Dosage: ( 1 IN 1 D), ORAL
     Route: 048
     Dates: start: 20050101
  3. NORVASC [Concomitant]
     Indication: HYPERTENSION
     Dosage: (1 IN 1 D), ORAL
     Route: 048
  4. LIPITOR [Suspect]
     Indication: BLOOD CHOLESTEROL INCREASED
     Dosage: (1 IN 1 D) , ORAL
     Route: 048
  5. BENADRYL [Suspect]
     Indication: ANGIONEUROTIC OEDEMA
     Dosage: INTRAVENOUS
     Route: 042
     Dates: start: 20050801
  6. PREDNISONE [Suspect]
     Indication: TEMPORAL ARTERITIS
     Dosage: 80 MG (1 IN 1D), ORAL
     Route: 048
  7. ALL OTHER THERAPEUTIC PRODUCTS (ALL OTHER THERAPEUTIC PRODUCTS) [Suspect]
     Indication: ANGIONEUROTIC OEDEMA
     Dosage: INRAVENOUS
     Route: 042
     Dates: start: 20050801, end: 20050801
  8. MORPHINE [Concomitant]
  9. METOPROLOL TARTRATE [Concomitant]
  10. ASPIRIN [Concomitant]
  11. HYDROCHOROTHIAZIDE (HYDROCHLOROTHIAZIDE) [Concomitant]

REACTIONS (10)
  - ANGIONEUROTIC OEDEMA [None]
  - BLOOD PRESSURE INCREASED [None]
  - FEELING ABNORMAL [None]
  - MENTAL DISORDER [None]
  - PARANOIA [None]
  - PHARYNGEAL OEDEMA [None]
  - SWELLING FACE [None]
  - TEMPORAL ARTERITIS [None]
  - WEIGHT INCREASED [None]
  - WHITE BLOOD CELL COUNT DECREASED [None]
